FAERS Safety Report 9493825 (Version 1)
Quarter: 2013Q3

REPORT INFORMATION
  Report Type: Report from Study
  Country: BR (occurrence: BR)
  Receive Date: 20130902
  Receipt Date: 20130902
  Transmission Date: 20140515
  Serious: Yes (Death)
  Sender: FDA-Public Use
  Company Number: PHHY2013BR095541

PATIENT
  Age: 50 Year
  Sex: Male

DRUGS (1)
  1. DIOVAN AMLO FIX [Suspect]
     Indication: HYPERTENSION
     Dosage: 1 DF, DAILY (160 MG VAL AND 10 MG AMLO)
     Route: 048
     Dates: end: 20130726

REACTIONS (1)
  - Gun shot wound [Fatal]
